FAERS Safety Report 7502040-2 (Version None)
Quarter: 2011Q2

REPORT INFORMATION
  Report Type: 
  Country: None (occurrence: None)
  Receive Date: 20110523
  Receipt Date: 20110523
  Transmission Date: 20111010
  Serious: Yes (Disabling)
  Sender: FDA-Public Use
  Company Number: None

PATIENT
  Age: 79 Year
  Sex: Female
  Weight: 78.4723 kg

DRUGS (1)
  1. ARMODAFINIL [Suspect]
     Indication: DRUG THERAPY
     Dosage: 3 TABS QAM PO
     Route: 048
     Dates: start: 20110207, end: 20110323

REACTIONS (6)
  - TEARFULNESS [None]
  - FATIGUE [None]
  - FRUSTRATION [None]
  - ACTIVITIES OF DAILY LIVING IMPAIRED [None]
  - DYSSTASIA [None]
  - ASTHENIA [None]
